FAERS Safety Report 4984444-5 (Version None)
Quarter: 2006Q2

REPORT INFORMATION
  Report Type: 
  Country: None (occurrence: None)
  Receive Date: 20060420
  Receipt Date: 20060329
  Transmission Date: 20061013
  Serious: Yes (Hospitalization)
  Sender: FDA-Public Use
  Company Number: ENTC2005-0325

PATIENT
  Age: 79 Year
  Sex: Male

DRUGS (3)
  1. STALEVO 100 [Suspect]
     Indication: PARKINSON'S DISEASE
     Dosage: 50 MG/12.5MG 1 TABL. IN THE MORNING ORAL
     Route: 048
     Dates: start: 20050908, end: 20051014
  2. GLIBENCLAMIDE [Concomitant]
  3. PERSANTIN DEPOT [Concomitant]

REACTIONS (12)
  - ABDOMINAL PAIN [None]
  - ABDOMINAL PAIN UPPER [None]
  - CHEST PAIN [None]
  - GENERAL PHYSICAL HEALTH DETERIORATION [None]
  - HAEMOGLOBIN DECREASED [None]
  - INCORRECT DOSE ADMINISTERED [None]
  - MALAISE [None]
  - MUSCULAR WEAKNESS [None]
  - NAUSEA [None]
  - PETIT MAL EPILEPSY [None]
  - RENAL CELL CARCINOMA STAGE UNSPECIFIED [None]
  - SYNCOPE [None]
